FAERS Safety Report 5505865-8 (Version None)
Quarter: 2007Q4

REPORT INFORMATION
  Report Type: 
  Country: None (occurrence: None)
  Receive Date: 20071102
  Receipt Date: 20071024
  Transmission Date: 20080405
  Serious: Yes (Other)
  Sender: FDA-Public Use
  Company Number: JP-MERCK-0710USA05993

PATIENT

DRUGS (3)
  1. DECADRON [Suspect]
     Indication: MULTIPLE MYELOMA
     Route: 065
  2. DOXORUBICIN HYDROCHLORIDE [Suspect]
     Indication: MULTIPLE MYELOMA
     Route: 051
  3. ONCOVIN [Suspect]
     Indication: MULTIPLE MYELOMA
     Route: 051

REACTIONS (3)
  - BONE MARROW FAILURE [None]
  - NEUROPATHY PERIPHERAL [None]
  - STOMATITIS [None]
